FAERS Safety Report 11808991 (Version 1)
Quarter: 2015Q4

REPORT INFORMATION
  Report Type: Spontaneous
  Country: GB (occurrence: GB)
  Receive Date: 20151207
  Receipt Date: 20151207
  Transmission Date: 20160305
  Serious: Yes (Other)
  Sender: FDA-Public Use
  Company Number: GB-REGENERON PHARMACEUTICALS, INC.-2015-14495

PATIENT

DRUGS (7)
  1. SALBUTAMOL [Concomitant]
     Active Substance: ALBUTEROL
  2. RAMIPRIL. [Concomitant]
     Active Substance: RAMIPRIL
  3. TRIAMCINOLONE [Concomitant]
     Active Substance: TRIAMCINOLONE
  4. EYLEA [Suspect]
     Active Substance: AFLIBERCEPT
     Indication: NEOVASCULAR AGE-RELATED MACULAR DEGENERATION
     Dosage: 2 MG, UNK
     Dates: start: 20151030, end: 20151030
  5. FUROSEMIDE. [Concomitant]
     Active Substance: FUROSEMIDE
  6. TILDIEM [Concomitant]
     Active Substance: DILTIAZEM HYDROCHLORIDE
  7. SIMVASTATIN. [Concomitant]
     Active Substance: SIMVASTATIN

REACTIONS (7)
  - Feeling of body temperature change [Recovered/Resolved]
  - Headache [Recovered/Resolved]
  - Hypersensitivity [Unknown]
  - Mouth swelling [Recovered/Resolved]
  - Dyspnoea [Recovered/Resolved]
  - Abdominal tenderness [Unknown]
  - Dysuria [Recovered/Resolved]

NARRATIVE: CASE EVENT DATE: 201510
